FAERS Safety Report 11512949 (Version 1)
Quarter: 2015Q3

REPORT INFORMATION
  Report Type: Spontaneous
  Country: US (occurrence: US)
  Receive Date: 20150916
  Receipt Date: 20150916
  Transmission Date: 20151125
  Serious: No
  Sender: FDA-Public Use
  Company Number: US-GLENMARK PHARMACEUTICALS INC, USA.-2014GMK010777

PATIENT
  Age: 29 Year
  Sex: Female

DRUGS (2)
  1. LUPRON DEPOT-PED [Suspect]
     Active Substance: LEUPROLIDE ACETATE
     Dosage: 11.25 MG, EVERY 3 MONTHS
     Dates: start: 20140626
  2. NORETHINDRONE ACETATE. [Suspect]
     Active Substance: NORETHINDRONE ACETATE
     Dosage: 5 MG, UNK
     Route: 048
     Dates: start: 20140626

REACTIONS (4)
  - Feeling hot [Not Recovered/Not Resolved]
  - Flushing [Not Recovered/Not Resolved]
  - Decreased appetite [Not Recovered/Not Resolved]
  - Nausea [Not Recovered/Not Resolved]

NARRATIVE: CASE EVENT DATE: 20140711
